FAERS Safety Report 7245233-4 (Version None)
Quarter: 2011Q1

REPORT INFORMATION
  Report Type: 
  Country: None (occurrence: None)
  Receive Date: 20110126
  Receipt Date: 20110120
  Transmission Date: 20110831
  Serious: Yes (Hospitalization)
  Sender: FDA-Public Use
  Company Number: DE-BRISTOL-MYERS SQUIBB COMPANY-15501943

PATIENT
  Age: 62 Year
  Sex: Male

DRUGS (2)
  1. METFORMIN HCL [Suspect]
     Dates: start: 20100101
  2. ONGLYZA [Suspect]
     Dates: start: 20100101

REACTIONS (1)
  - PNEUMONIA [None]
